FAERS Safety Report 4714358-7 (Version None)
Quarter: 2005Q3

REPORT INFORMATION
  Report Type: 
  Country: None (occurrence: None)
  Receive Date: 20050714
  Receipt Date: 20050517
  Transmission Date: 20060218
  Serious: Yes (Other)
  Sender: FDA-Public Use
  Company Number: NL-ROCHE-405021

PATIENT
  Age: 57 Year
  Sex: Male

DRUGS (2)
  1. XELODA [Suspect]
     Indication: COLON CANCER METASTATIC
     Route: 048
     Dates: start: 20050110, end: 20050426
  2. NOVOMIX INSULIN [Concomitant]
     Indication: DIABETES MELLITUS
     Dosage: STRENGTH REPORTED AS 100 E/ML
     Route: 058
     Dates: start: 20030615

REACTIONS (1)
  - HAEMOLYTIC ANAEMIA [None]
